FAERS Safety Report 18642939 (Version 1)
Quarter: 2020Q4

REPORT INFORMATION
  Report Type: Spontaneous
  Country: US (occurrence: US)
  Receive Date: 20201220
  Receipt Date: 20201220
  Transmission Date: 20210114
  Serious: Yes (Life-Threatening, Disabling)
  Sender: FDA-Public Use
  Company Number: None

PATIENT
  Age: 50 Year
  Sex: Female
  Weight: 77.85 kg

DRUGS (10)
  1. FLONASE [Concomitant]
     Active Substance: FLUTICASONE PROPIONATE
  2. CHLORAPREP [Suspect]
     Active Substance: CHLORHEXIDINE GLUCONATE\ISOPROPYL ALCOHOL
     Indication: SURGERY
  3. TYLENOL [Concomitant]
     Active Substance: ACETAMINOPHEN
  4. VITAMIN B12 [Concomitant]
     Active Substance: CYANOCOBALAMIN
  5. ADDERALL [Concomitant]
     Active Substance: AMPHETAMINE ASPARTATE\AMPHETAMINE SULFATE\DEXTROAMPHETAMINE SACCHARATE\DEXTROAMPHETAMINE SULFATE
  6. VALIUM [Concomitant]
     Active Substance: DIAZEPAM
  7. CHLORTAB [Concomitant]
     Active Substance: CHLORPHENIRAMINE MALEATE
  8. ESTROGEL [Concomitant]
     Active Substance: ESTRADIOL
  9. PROBIOTIC [Concomitant]
     Active Substance: PROBIOTICS NOS
  10. FOLATE SUPPLEMNTS FOR VITAMIN C,E,AND VITAMIN D [Concomitant]

REACTIONS (2)
  - Hypersensitivity [None]
  - Anaphylactic reaction [None]

NARRATIVE: CASE EVENT DATE: 20161028
